FAERS Safety Report 8427480-9 (Version None)
Quarter: 2012Q2

REPORT INFORMATION
  Report Type: 
  Country: None (occurrence: None)
  Receive Date: 20120611
  Receipt Date: 20120530
  Transmission Date: 20120825
  Serious: Yes (Other)
  Sender: FDA-Public Use
  Company Number: JP-ELI_LILLY_AND_COMPANY-JP201206002216

PATIENT
  Age: 76 Year
  Sex: Female

DRUGS (1)
  1. ALIMTA [Suspect]
     Dosage: UNK, OTHER
     Route: 042

REACTIONS (6)
  - DELUSION [None]
  - MALAISE [None]
  - DEPRESSIVE SYMPTOM [None]
  - ABULIA [None]
  - SUICIDE ATTEMPT [None]
  - HALLUCINATION, AUDITORY [None]
